FAERS Safety Report 21732916 (Version 1)
Quarter: 2022Q4

REPORT INFORMATION
  Report Type: Report from Study
  Country: US (occurrence: US)
  Receive Date: 20221215
  Receipt Date: 20221215
  Transmission Date: 20230113
  Serious: No
  Sender: FDA-Public Use
  Company Number: US-ABBVIE-4233882

PATIENT
  Sex: Female

DRUGS (1)
  1. HUMIRA [Suspect]
     Active Substance: ADALIMUMAB
     Indication: Psoriasis
     Dosage: CF PEN
     Route: 058

REACTIONS (3)
  - Impaired healing [Recovering/Resolving]
  - Skin laceration [Recovering/Resolving]
  - Injection site erythema [Recovered/Resolved]
